FAERS Safety Report 22333037 (Version 7)
Quarter: 2025Q1

REPORT INFORMATION
  Report Type: Spontaneous
  Country: US (occurrence: US)
  Receive Date: 20230517
  Receipt Date: 20250220
  Transmission Date: 20250409
  Serious: No
  Sender: PFIZER
  Company Number: US-PFIZER INC-PV202300084981

PATIENT
  Age: 52 Year
  Sex: Female

DRUGS (3)
  1. MEKTOVI [Suspect]
     Active Substance: BINIMETINIB
     Indication: Malignant melanoma
     Dosage: 45 MG, 2X/DAY (TAKE 3 TABLETS OF 15 MG, TWICE DAILY WITH OR WITHOUT FOOD)
     Route: 048
  2. BRAFTOVI [Suspect]
     Active Substance: ENCORAFENIB
     Dosage: 450 MG/ TAKE 1 CAP DAILY
     Route: 048
  3. BRAFTOVI [Suspect]
     Active Substance: ENCORAFENIB
     Dosage: 6 QD

REACTIONS (2)
  - COVID-19 [Unknown]
  - Product prescribing error [Unknown]
